FAERS Safety Report 7071683-5 (Version None)
Quarter: 2010Q4

REPORT INFORMATION
  Report Type: 
  Country: None (occurrence: None)
  Receive Date: 20101029
  Receipt Date: 20091007
  Transmission Date: 20110411
  Serious: No
  Sender: FDA-Public Use
  Company Number: A0810755A

PATIENT
  Age: 55 Year
  Sex: Female

DRUGS (3)
  1. ADVAIR DISKUS 100/50 [Suspect]
     Dosage: 1PUFF TWICE PER DAY
     Route: 055
     Dates: start: 20090913, end: 20090914
  2. ANTIBIOTIC [Concomitant]
  3. COUGH PILL [Concomitant]

REACTIONS (7)
  - DRY MOUTH [None]
  - GASTRIC DISORDER [None]
  - HEADACHE [None]
  - HEART RATE INCREASED [None]
  - NAUSEA [None]
  - ORAL FUNGAL INFECTION [None]
  - TONGUE DISCOLOURATION [None]
